FAERS Safety Report 7476126-5 (Version None)
Quarter: 2011Q2

REPORT INFORMATION
  Report Type: 
  Country: None (occurrence: None)
  Receive Date: 20110512
  Receipt Date: 20110509
  Transmission Date: 20111010
  Serious: Yes (Life-Threatening, Disabling)
  Sender: FDA-Public Use
  Company Number: GB-MERCK-1105GBR00029

PATIENT
  Age: 82 Year

DRUGS (6)
  1. WARFARIN [Concomitant]
     Route: 048
  2. ATORVASTATIN [Concomitant]
     Indication: MYOCARDIAL ISCHAEMIA
     Route: 048
  3. OMEPRAZOLE [Concomitant]
     Route: 048
  4. JANUVIA [Suspect]
     Route: 048
     Dates: start: 20100101
  5. DOXAZOSIN MESYLATE [Concomitant]
     Indication: HYPERTENSION
     Route: 048
  6. RAMIPRIL [Concomitant]
     Indication: HYPERTENSION
     Route: 048

REACTIONS (1)
  - OESOPHAGEAL CARCINOMA [None]
